FAERS Safety Report 13773191 (Version 3)
Quarter: 2017Q3

REPORT INFORMATION
  Report Type: Spontaneous
  Country: US (occurrence: US)
  Receive Date: 20170720
  Receipt Date: 20170802
  Transmission Date: 20171127
  Serious: Yes (Other)
  Sender: FDA-Public Use
  Company Number: US-LUNDBECK-DKLU2034301

PATIENT
  Sex: Male

DRUGS (1)
  1. NORTHERA [Suspect]
     Active Substance: DROXIDOPA
     Indication: PRODUCT USED FOR UNKNOWN INDICATION
     Dosage: SCHEDULE B AND TITRATING
     Route: 048
     Dates: start: 20170630

REACTIONS (7)
  - Dizziness [Unknown]
  - Loss of consciousness [Unknown]
  - Eye pain [Unknown]
  - Headache [Unknown]
  - Drug effect delayed [Unknown]
  - Fatigue [Unknown]
  - Blood pressure fluctuation [Unknown]
